FAERS Safety Report 16005705 (Version 9)
Quarter: 2024Q3

REPORT INFORMATION
  Report Type: Report from Study
  Country: BR (occurrence: BR)
  Receive Date: 20190226
  Receipt Date: 20240930
  Transmission Date: 20241017
  Serious: Yes (Hospitalization, Other)
  Sender: GLAXOSMITHKLINE
  Company Number: BR-GLAXOSMITHKLINE-BR2019GSK033217

PATIENT

DRUGS (18)
  1. BELIMUMAB [Suspect]
     Active Substance: BELIMUMAB
     Indication: Systemic lupus erythematosus
     Dosage: UNK, START DATE:2017
     Route: 042
  2. BELIMUMAB [Suspect]
     Active Substance: BELIMUMAB
     Dosage: UNK START DATE: 03-JUL-2019
     Route: 042
  3. BELIMUMAB [Suspect]
     Active Substance: BELIMUMAB
     Dosage: UNK START DATE: 20-APR-2020
     Route: 042
  4. BELIMUMAB [Suspect]
     Active Substance: BELIMUMAB
     Dosage: UNK START DATE: 22-MAY-2020
     Route: 042
  5. BELIMUMAB [Suspect]
     Active Substance: BELIMUMAB
     Dosage: UNK, START DATE: 20-AUG-2020
     Route: 042
  6. BELIMUMAB [Suspect]
     Active Substance: BELIMUMAB
     Dosage: UNK, START DATE : 28-SEP-2020
     Route: 042
  7. BELIMUMAB [Suspect]
     Active Substance: BELIMUMAB
     Dosage: UNK START DATE: 14-JUL-2021
     Route: 042
  8. BELIMUMAB [Suspect]
     Active Substance: BELIMUMAB
     Dosage: UNK, START DATE: 18-AUG-2021
     Route: 042
  9. BELIMUMAB [Suspect]
     Active Substance: BELIMUMAB
     Dosage: UNK START DATE: 16-FEB-2022
     Route: 042
  10. BELIMUMAB [Suspect]
     Active Substance: BELIMUMAB
     Dosage: UNK, START DATE: 13-APR-2022
     Route: 042
  11. BELIMUMAB [Suspect]
     Active Substance: BELIMUMAB
     Dosage: UNK, START DATE: 22-JUN-2022
     Route: 042
  12. BELIMUMAB [Suspect]
     Active Substance: BELIMUMAB
     Dosage: UNK,START DATE: 23-NOV-2022
     Route: 042
  13. BELIMUMAB [Suspect]
     Active Substance: BELIMUMAB
     Dosage: UNK, START DATE: 21-DEC-2022
     Route: 042
  14. BELIMUMAB [Suspect]
     Active Substance: BELIMUMAB
     Dosage: UNK, START DATE: 18-JUL-2023
     Route: 042
  15. BELIMUMAB [Suspect]
     Active Substance: BELIMUMAB
     Dosage: UNK, START DATE:18-AUG-2023
     Route: 042
  16. FLUOXETINE [Concomitant]
     Active Substance: FLUOXETINE HYDROCHLORIDE
     Indication: Depression
     Dosage: UNK
  17. LORATADINE [Concomitant]
     Active Substance: LORATADINE
     Indication: Product used for unknown indication
  18. DIPYRONE [Concomitant]
     Active Substance: DIPYRONE
     Indication: Product used for unknown indication

REACTIONS (26)
  - Femur fracture [Recovered/Resolved]
  - Fall [Recovered/Resolved]
  - Malaise [Recovered/Resolved]
  - Pain [Recovered/Resolved]
  - Arthralgia [Recovered/Resolved]
  - Weight increased [Unknown]
  - Pain in extremity [Unknown]
  - Mobility decreased [Not Recovered/Not Resolved]
  - Condition aggravated [Recovered/Resolved]
  - Oropharyngeal pain [Not Recovered/Not Resolved]
  - Myalgia [Unknown]
  - Joint swelling [Unknown]
  - Gait disturbance [Unknown]
  - COVID-19 [Unknown]
  - Social problem [Unknown]
  - Product dose omission issue [Unknown]
  - Inappropriate schedule of product administration [Unknown]
  - Circumstance or information capable of leading to medication error [Unknown]
  - Myalgia [Unknown]
  - Lower limb fracture [Unknown]
  - COVID-19 [Recovered/Resolved]
  - Inappropriate schedule of product administration [Unknown]
  - Inappropriate schedule of product administration [Not Recovered/Not Resolved]
  - Discomfort [Unknown]
  - Pain in extremity [Recovered/Resolved]
  - Gait disturbance [Recovered/Resolved]

NARRATIVE: CASE EVENT DATE: 20190216
